FAERS Safety Report 19768580 (Version 5)
Quarter: 2021Q4

REPORT INFORMATION
  Report Type: Report from Study
  Country: None (occurrence: AR)
  Receive Date: 20210830
  Receipt Date: 20211007
  Transmission Date: 20220303
  Serious: Yes (Other)
  Sender: FDA-Public Use
  Company Number: AR-ABBVIE-21K-007-4058893-00

PATIENT
  Sex: Male

DRUGS (1)
  1. HUMIRA [Suspect]
     Active Substance: ADALIMUMAB
     Indication: Rheumatoid arthritis
     Route: 058
     Dates: start: 20191223

REACTIONS (6)
  - Peripheral artery occlusion [Recovering/Resolving]
  - Thrombosis [Recovering/Resolving]
  - Limb injury [Unknown]
  - Peripheral coldness [Unknown]
  - Contusion [Unknown]
  - Peripheral swelling [Unknown]
